FAERS Safety Report 4709416-7 (Version None)
Quarter: 2005Q3

REPORT INFORMATION
  Report Type: 
  Country: None (occurrence: None)
  Receive Date: 20050705
  Receipt Date: 20050623
  Transmission Date: 20060218
  Serious: No
  Sender: FDA-Public Use
  Company Number: 215595

PATIENT
  Age: 9 Year
  Sex: Female
  Weight: 33.8 kg

DRUGS (6)
  1. NUTROPIN [Suspect]
     Indication: RENAL FAILURE
     Dosage: 1.85 MG QD SUBCUTANEOUS
     Route: 058
     Dates: start: 20011011
  2. ALKALI THERAPY NOS [Concomitant]
  3. ASACOL [Concomitant]
  4. CALCIUM CARBONATE [Concomitant]
  5. ERYTHROPOIETIN (EPOETIN NOS) [Concomitant]
  6. IMMUNOSUPPRESSANT THERAPY (IMMUNOSUPPRESSANT NOS) [Concomitant]

REACTIONS (1)
  - COLITIS ULCERATIVE [None]
